FAERS Safety Report 6335216-0 (Version None)
Quarter: 2009Q3

REPORT INFORMATION
  Report Type: 
  Country: None (occurrence: None)
  Receive Date: 20090828
  Receipt Date: 20090828
  Transmission Date: 20100115
  Serious: No
  Sender: FDA-Public Use
  Company Number: None

PATIENT
  Sex: Male
  Weight: 108.8633 kg

DRUGS (1)
  1. BENICAR [Suspect]
     Indication: HYPERTENSION
     Dosage: 40 MG 1 PER AM ORAL
     Route: 048
     Dates: start: 20081201, end: 20090701

REACTIONS (2)
  - DRUG EFFECT DECREASED [None]
  - GOUT [None]
